FAERS Safety Report 11363629 (Version 3)
Quarter: 2015Q3

REPORT INFORMATION
  Report Type: Spontaneous
  Country: US (occurrence: US)
  Receive Date: 20150811
  Receipt Date: 20150916
  Transmission Date: 20151125
  Serious: No
  Sender: FDA-Public Use
  Company Number: US-BAYER-2015-397277

PATIENT

DRUGS (1)
  1. ULTRAVIST [Suspect]
     Active Substance: IOPROMIDE
     Dosage: UNK, ONCE
     Dates: start: 20150807, end: 20150807

REACTIONS (3)
  - Pruritus [None]
  - Urticaria [None]
  - Eye swelling [None]

NARRATIVE: CASE EVENT DATE: 20150807
